FAERS Safety Report 17885954 (Version 1)
Quarter: 2020Q2

REPORT INFORMATION
  Report Type: Spontaneous
  Country: US (occurrence: US)
  Receive Date: 20200611
  Receipt Date: 20200611
  Transmission Date: 20200714
  Serious: No
  Sender: FDA-Public Use
  Company Number: US-TEVA-2020-US-1245465

PATIENT
  Age: 68 Year
  Sex: Male

DRUGS (1)
  1. TESTOSTERONE. [Suspect]
     Active Substance: TESTOSTERONE
     Dosage: HE HAS BEEN APPLYING IT IN THE EVENINGS
     Route: 065

REACTIONS (2)
  - Libido decreased [Unknown]
  - Prostatic specific antigen abnormal [Unknown]
